FAERS Safety Report 9477247 (Version 1)
Quarter: 2013Q3

REPORT INFORMATION
  Report Type: Spontaneous
  Country: DE (occurrence: DE)
  Receive Date: 20130826
  Receipt Date: 20130826
  Transmission Date: 20140515
  Serious: Yes (Other)
  Sender: FDA-Public Use
  Company Number: DE-BAXTER-2013BAX032866

PATIENT
  Age: 10 Year
  Sex: Female

DRUGS (4)
  1. KIOVIG (1 G/10 ML) [Suspect]
     Indication: CONVULSION
     Route: 065
  2. KIOVIG (1 G/10 ML) [Suspect]
     Indication: STATUS EPILEPTICUS
  3. KIOVIG (1 G/10 ML) [Suspect]
     Indication: OFF LABEL USE
  4. CORTICOSTEROIDS [Suspect]
     Indication: STATUS EPILEPTICUS
     Route: 065

REACTIONS (1)
  - Drug ineffective [Not Recovered/Not Resolved]
